FAERS Safety Report 22257856 (Version 1)
Quarter: 2023Q2

REPORT INFORMATION
  Report Type: Spontaneous
  Country: US (occurrence: None)
  Receive Date: 20230427
  Receipt Date: 20230427
  Transmission Date: 20230721
  Serious: Yes (Hospitalization)
  Sender: FDA-Public Use
  Company Number: US-ADAMAS Pharma-ADM202304-001623

PATIENT
  Age: 52 Year
  Sex: Female

DRUGS (10)
  1. AMANTADINE HYDROCHLORIDE [Suspect]
     Active Substance: AMANTADINE HYDROCHLORIDE
     Indication: Catatonia
  2. LORAZEPAM [Concomitant]
     Active Substance: LORAZEPAM
     Route: 042
  3. LORAZEPAM [Concomitant]
     Active Substance: LORAZEPAM
     Route: 042
  4. LEVETIRACETAM [Concomitant]
     Active Substance: LEVETIRACETAM
  5. LEVETIRACETAM [Concomitant]
     Active Substance: LEVETIRACETAM
     Dosage: 30 MG/KG LOADING DOSE
  6. HYDROXYCHLOROQUINE [Concomitant]
     Active Substance: HYDROXYCHLOROQUINE
  7. PREDNISONE [Concomitant]
     Active Substance: PREDNISONE
  8. AMANTADINE [Concomitant]
     Active Substance: AMANTADINE
  9. VENLAFAXINE [Concomitant]
     Active Substance: VENLAFAXINE HYDROCHLORIDE
  10. LAMOTRIGINE [Concomitant]
     Active Substance: LAMOTRIGINE

REACTIONS (6)
  - Neuroleptic malignant syndrome [Recovered/Resolved]
  - Acute respiratory failure [Recovered/Resolved]
  - Pneumonia aspiration [Recovered/Resolved]
  - Seizure [Unknown]
  - Drug withdrawal syndrome [Recovered/Resolved]
  - Drug effective for unapproved indication [Unknown]
